FAERS Safety Report 4507438-2 (Version None)
Quarter: 2004Q4

REPORT INFORMATION
  Report Type: 
  Country: None (occurrence: None)
  Receive Date: 20041118
  Receipt Date: 20041108
  Transmission Date: 20050328
  Serious: Yes (Hospitalization)
  Sender: FDA-Public Use
  Company Number: HQWYE333710NOV04

PATIENT
  Age: 52 Year
  Sex: Male
  Weight: 81.27 kg

DRUGS (15)
  1. RAPAMUNE [Suspect]
     Indication: PROPHYLAXIS AGAINST TRANSPLANT REJECTION
     Dosage: 2 MG X 2, THEN 1 MG X 1 DAILY
     Dates: start: 20040409
  2. PREDNISONE [Concomitant]
  3. SODIUM BICARBONATE IN PLASTIC CONTAINER [Concomitant]
  4. PREVACID [Concomitant]
  5. ACTIGALL [Concomitant]
  6. ASPIRIN [Concomitant]
  7. CLONIDINE [Concomitant]
  8. FISH OIL, HYDROGENATED (FISH OIL, HYDROGENATED) [Concomitant]
  9. GLIPIZIDE (GLIPIIZIDE) [Concomitant]
  10. LASIX [Concomitant]
  11. MAGNESIUM (MAGNESIUM) [Concomitant]
  12. METOPROLOL TARTRATE [Concomitant]
  13. ALLOPURINOL [Concomitant]
  14. FOLIC ACID [Concomitant]
  15. LIPITOR [Concomitant]

REACTIONS (1)
  - HYPERTENSIVE CRISIS [None]
